FAERS Safety Report 6284156-4 (Version None)
Quarter: 2009Q3

REPORT INFORMATION
  Report Type: 
  Country: None (occurrence: None)
  Receive Date: 20090722
  Receipt Date: 20090708
  Transmission Date: 20100115
  Serious: Yes (Death)
  Sender: FDA-Public Use
  Company Number: 2009PV000058

PATIENT
  Sex: Male

DRUGS (1)
  1. DEPOCYT [Suspect]
     Indication: PROPHYLACTIC CHEMOTHERAPY
     Dosage: 50 MG;X2;INTH
     Route: 037
     Dates: start: 20090101, end: 20090429

REACTIONS (1)
  - CEREBRAL INFARCTION [None]
